FAERS Safety Report 5024127-9 (Version None)
Quarter: 2006Q2

REPORT INFORMATION
  Report Type: 
  Country: None (occurrence: None)
  Receive Date: 20060607
  Receipt Date: 20060525
  Transmission Date: 20061013
  Serious: Yes (Other)
  Sender: FDA-Public Use
  Company Number: 2006056066

PATIENT
  Sex: Male
  Weight: 90.7194 kg

DRUGS (7)
  1. LIPITOR [Suspect]
     Indication: BLOOD CHOLESTEROL
  2. CARDIZEM [Suspect]
     Indication: ILL-DEFINED DISORDER
  3. TAMSULOSIN HYDROCHLORIDE [Concomitant]
  4. NEXIUM [Concomitant]
  5. HYZAAR [Concomitant]
  6. PROSCAR [Concomitant]
  7. AMOXICILLIN [Concomitant]

REACTIONS (10)
  - ANEURYSM [None]
  - ARTHRITIS [None]
  - BLOOD ALKALINE PHOSPHATASE INCREASED [None]
  - BLOOD POTASSIUM DECREASED [None]
  - HEPATIC ENZYME INCREASED [None]
  - JOINT EFFUSION [None]
  - MEDICAL DIET [None]
  - OEDEMA PERIPHERAL [None]
  - PROSTATE CANCER [None]
  - SWELLING [None]
